FAERS Safety Report 14080191 (Version 1)
Quarter: 2017Q4

REPORT INFORMATION
  Report Type: Spontaneous
  Country: US (occurrence: US)
  Receive Date: 20171012
  Receipt Date: 20171012
  Transmission Date: 20180321
  Serious: No
  Sender: FDA-Public Use
  Company Number: US-MYLANLABS-2017M1031729

PATIENT
  Age: 58 Year
  Sex: Female
  Weight: 70.75 kg

DRUGS (2)
  1. FENTANYL TRANSDERMAL SYSTEM [Suspect]
     Active Substance: FENTANYL
     Indication: GASTRIC BYPASS
     Dosage: 75 ?G, HS, CHANGE EVERY 72 HOURS
     Route: 062
     Dates: start: 201703
  2. FENTANYL TRANSDERMAL SYSTEM [Suspect]
     Active Substance: FENTANYL
     Indication: HERNIA PAIN

REACTIONS (2)
  - Drug ineffective [Recovered/Resolved]
  - Product adhesion issue [Not Recovered/Not Resolved]

NARRATIVE: CASE EVENT DATE: 201703
